FAERS Safety Report 8838234 (Version 2)
Quarter: 2012Q4

REPORT INFORMATION
  Report Type: 
  Country: FR (occurrence: FR)
  Receive Date: 20121012
  Receipt Date: 20121025
  Transmission Date: 20130627
  Serious: Yes (Death, Other)
  Sender: FDA-Public Use
  Company Number: FR-ROCHE-1144381

PATIENT
  Sex: Male

DRUGS (7)
  1. LUCENTIS [Suspect]
     Indication: AGE-RELATED MACULAR DEGENERATION
     Route: 050
     Dates: start: 20120126
  2. LUCENTIS [Suspect]
     Route: 050
     Dates: start: 20120906
  3. SINTRON (INGREDIENTS UNKNOWN) [Concomitant]
  4. KARDEGIC [Concomitant]
  5. CARDENSIEL [Concomitant]
  6. COVERSYL [Concomitant]
  7. PRAVASTATINE [Concomitant]

REACTIONS (2)
  - Cerebrovascular accident [Fatal]
  - Retinal detachment [Unknown]
